FAERS Safety Report 11467757 (Version 1)
Quarter: 2015Q3

REPORT INFORMATION
  Report Type: Spontaneous
  Country: GB (occurrence: None)
  Receive Date: 20150903
  Receipt Date: 20150903
  Transmission Date: 20151125
  Serious: Yes (Other)
  Sender: FDA-Public Use
  Company Number: GB-LHC-2015113

PATIENT
  Age: 73 Year
  Sex: Female
  Weight: 89 kg

DRUGS (30)
  1. OMEPRAZOLE. [Concomitant]
     Active Substance: OMEPRAZOLE
  2. SALBUTAMOL [Concomitant]
     Active Substance: ALBUTEROL
  3. OXYGEN (GENERIC) (OXYGEN) (INHALATION GAS) (OXYGEN) (VERUM) [Suspect]
     Active Substance: OXYGEN
     Indication: PRODUCT USED FOR UNKNOWN INDICATION
     Route: 055
     Dates: start: 20150811
  4. OXYCONTIN [Concomitant]
     Active Substance: OXYCODONE HYDROCHLORIDE
  5. OXYNORM (OXYCODONE HYDROCHLORIDE) (OXYCODONE HYDROCHLORIDE) [Concomitant]
     Active Substance: OXYCODONE HYDROCHLORIDE
  6. ALENDRONIC ACID [Concomitant]
     Active Substance: ALENDRONIC ACID
  7. DIAZEPAM. [Concomitant]
     Active Substance: DIAZEPAM
  8. DIPROBASE [Concomitant]
     Active Substance: CHLOROCRESOL
  9. LORAZEPAM. [Concomitant]
     Active Substance: LORAZEPAM
  10. MIDAZOLAM [Concomitant]
     Active Substance: MIDAZOLAM\MIDAZOLAM HYDROCHLORIDE
  11. ORAMORPH SR SUSTAINED RELEASE [Concomitant]
     Active Substance: MORPHINE SULFATE
  12. PREDNISOLONE SODIUM PHOSPHATE. [Concomitant]
     Active Substance: PREDNISOLONE SODIUM PHOSPHATE
  13. AMITRIPTYLINE [Concomitant]
     Active Substance: AMITRIPTYLINE
  14. PARACETAMOL [Concomitant]
     Active Substance: ACETAMINOPHEN
  15. PHENYTOIN. [Concomitant]
     Active Substance: PHENYTOIN
  16. PREDNISOLONE. [Concomitant]
     Active Substance: PREDNISOLONE
  17. ZOPICLONE [Concomitant]
     Active Substance: ZOPICLONE
  18. ACETYLCYSTEINE. [Concomitant]
     Active Substance: ACETYLCYSTEINE
  19. DIAMORPHINE HYDROCHLORIDE [Concomitant]
     Active Substance: DIACETYLMORPHINE HYDROCHLORIDE
  20. MATRIFEN [Concomitant]
     Active Substance: FENTANYL
  21. MST CONTINUS [Concomitant]
     Active Substance: MORPHINE SULFATE
  22. FUSIDIC ACID [Suspect]
     Active Substance: FUSIDIC ACID
     Route: 045
     Dates: start: 20150811
  23. LOSARTAN. [Concomitant]
     Active Substance: LOSARTAN
  24. MELOXICAM. [Concomitant]
     Active Substance: MELOXICAM
  25. MORPHINE SULFATE. [Concomitant]
     Active Substance: MORPHINE SULFATE
  26. MOVICOL [Concomitant]
     Active Substance: POLYETHYLENE GLYCOL 3350\POTASSIUM CHLORIDE\SODIUM BICARBONATE\SODIUM CHLORIDE
  27. SODIUM CHLORIDE. [Concomitant]
     Active Substance: SODIUM CHLORIDE
  28. WATER. [Concomitant]
     Active Substance: WATER
  29. HALOPERIDOL. [Concomitant]
     Active Substance: HALOPERIDOL
  30. HYOSCINE BUTYLBROMIDE [Concomitant]
     Active Substance: BUTYLSCOPOLAMINE

REACTIONS (2)
  - Drug interaction [None]
  - Thermal burn [None]
